FAERS Safety Report 20201769 (Version 2)
Quarter: 2022Q1

REPORT INFORMATION
  Report Type: Spontaneous
  Country: ZA (occurrence: ZA)
  Receive Date: 20211217
  Receipt Date: 20220301
  Transmission Date: 20220423
  Serious: Yes (Life-Threatening, Other)
  Sender: FDA-Public Use
  Company Number: ZA-AMERICAN REGENT INC-2021003288

PATIENT
  Age: 79 Year
  Sex: Male
  Weight: 80 kg

DRUGS (10)
  1. FERINJECT [Suspect]
     Active Substance: FERRIC CARBOXYMALTOSE
     Indication: Iron deficiency anaemia
     Dosage: 1500 MILLIGRAM IN AN UNSPECIFIED DILUTION
     Dates: start: 202103, end: 202103
  2. FERINJECT [Suspect]
     Active Substance: FERRIC CARBOXYMALTOSE
     Dosage: 1000 MILLIGRAM, ONCE-OFF
     Dates: start: 20211111, end: 20211111
  3. FERINJECT [Suspect]
     Active Substance: FERRIC CARBOXYMALTOSE
     Dosage: 500 MILLIGRAM
     Dates: start: 20211118, end: 20211118
  4. WARFARIN [Suspect]
     Active Substance: WARFARIN
     Indication: Atrial fibrillation
     Dosage: UNK
     Route: 065
     Dates: start: 2002, end: 20211112
  5. TAMBOCOR [Concomitant]
     Active Substance: FLECAINIDE ACETATE
     Indication: Atrial fibrillation
     Dosage: UNK
     Route: 065
  6. BISOPROLOL [Concomitant]
     Active Substance: BISOPROLOL
     Indication: Product used for unknown indication
     Dosage: UNK
     Route: 065
  7. UROMAX [TESTOSTERONE UNDECANOATE] [Concomitant]
     Indication: Product used for unknown indication
     Dosage: UNK
     Route: 065
  8. ALLOPURINOL [Concomitant]
     Active Substance: ALLOPURINOL
     Indication: Arthritis
     Dosage: UNK
     Route: 065
     Dates: start: 201510
  9. OMEPRAZOLE [Concomitant]
     Active Substance: OMEPRAZOLE
     Indication: Hiatus hernia
     Dosage: UNK
     Route: 065
     Dates: start: 2014
  10. ELIQUIS [Concomitant]
     Active Substance: APIXABAN
     Indication: Product used for unknown indication
     Dosage: UNK
     Route: 065
     Dates: start: 20211112, end: 20211119

REACTIONS (5)
  - Contusion [Recovering/Resolving]
  - Acquired haemophilia [Recovering/Resolving]
  - Pain in extremity [Unknown]
  - Joint swelling [Unknown]
  - Overdose [Unknown]

NARRATIVE: CASE EVENT DATE: 20210301
